FAERS Safety Report 4498401-9 (Version None)
Quarter: 2004Q4

REPORT INFORMATION
  Report Type: 
  Country: None (occurrence: None)
  Receive Date: 20041105
  Receipt Date: 20041021
  Transmission Date: 20050328
  Serious: Yes (Death, Hospitalization)
  Sender: FDA-Public Use
  Company Number: 2004AP05024

PATIENT
  Age: 76 Year
  Sex: Female

DRUGS (8)
  1. IRESSA [Suspect]
     Indication: LUNG SQUAMOUS CELL CARCINOMA STAGE UNSPECIFIED
     Dosage: 250 MG DAILY PO
     Route: 048
     Dates: start: 20040826, end: 20040922
  2. KLARICID [Concomitant]
  3. FERROMIA [Concomitant]
  4. MUCODYNE [Concomitant]
  5. GLYBURIDE [Concomitant]
  6. ACECOL [Concomitant]
  7. HYPOCA [Concomitant]
  8. GASTER [Concomitant]

REACTIONS (6)
  - COMPUTERISED TOMOGRAM ABNORMAL [None]
  - DISEASE PROGRESSION [None]
  - LUNG DISORDER [None]
  - PRURITUS [None]
  - RASH [None]
  - STOMATITIS [None]
